FAERS Safety Report 4732253-4 (Version None)
Quarter: 2005Q3

REPORT INFORMATION
  Report Type: 
  Country: None (occurrence: None)
  Receive Date: 20050726
  Receipt Date: 20040504
  Transmission Date: 20060218
  Serious: Yes (Death, Life-Threatening)
  Sender: FDA-Public Use
  Company Number: 04GER0032

PATIENT
  Sex: Female

DRUGS (5)
  1. AGGRASTAT [Suspect]
     Indication: CORONARY ARTERY THROMBOSIS
     Dosage: 14 ML/HR,INTRAVENOUS
     Route: 042
     Dates: start: 20040312, end: 20000313
  2. ASPIRIN [Suspect]
     Dosage: 100 MG/DAILY
  3. CLOPIDOGREL BISULFATE [Suspect]
     Dosage: 75 MG/DAILY
  4. CARVEDILOL [Concomitant]
  5. DIPYRONE TAB [Concomitant]

REACTIONS (1)
  - CEREBRAL HAEMORRHAGE [None]
